FAERS Safety Report 5090168-9 (Version None)
Quarter: 2006Q3

REPORT INFORMATION
  Report Type: 
  Country: None (occurrence: None)
  Receive Date: 20060828
  Receipt Date: 20060531
  Transmission Date: 20061208
  Serious: Yes (Hospitalization, Other)
  Sender: FDA-Public Use
  Company Number: PHBS2006JP08300

PATIENT
  Age: 78 Year
  Sex: Male

DRUGS (11)
  1. DIOVAN [Suspect]
     Indication: HYPERTENSION
     Dosage: 160 MG/DAY
     Route: 048
     Dates: end: 20060501
  2. DIOVAN [Suspect]
     Dosage: 160 MG/DAY
     Route: 048
     Dates: start: 20060601
  3. ZANTAC [Concomitant]
     Dosage: 150 MG, UNK
     Route: 048
  4. DEPAS [Concomitant]
     Dosage: 0.5 MG, UNK
     Route: 048
  5. PURSENNID [Concomitant]
     Dosage: 24 MG, UNK
     Route: 048
  6. ALLOPURINOL [Concomitant]
     Dosage: 100 MG, UNK
     Route: 048
  7. RENIVACE [Concomitant]
     Dosage: 5 MG, UNK
     Route: 048
  8. HERBESSER [Concomitant]
     Dosage: 90 MG, UNK
     Route: 048
  9. SELBEX [Concomitant]
     Dosage: 150 MG, UNK
     Route: 048
  10. SIGMART [Concomitant]
     Dosage: 15 MG, UNK
  11. 8-HOUR BAYER [Concomitant]
     Route: 048

REACTIONS (5)
  - ANAEMIA [None]
  - FAECES DISCOLOURED [None]
  - GASTROINTESTINAL HAEMORRHAGE [None]
  - HAEMOGLOBIN DECREASED [None]
  - PANCREATIC CYST [None]
